FAERS Safety Report 8571983-3 (Version None)
Quarter: 2012Q3

REPORT INFORMATION
  Report Type: 
  Country: None (occurrence: None)
  Receive Date: 20120806
  Receipt Date: 20120723
  Transmission Date: 20120928
  Serious: Yes (Other)
  Sender: FDA-Public Use
  Company Number: TR-MYLANLABS-2012S1015129

PATIENT
  Age: 8 Year
  Sex: Female

DRUGS (9)
  1. METHOTREXATE [Suspect]
     Dosage: BERLIN-FRANKFURT-MUNSTER PROTOCOL
     Route: 065
  2. MERCAPTOPURINE [Suspect]
     Indication: ACUTE LYMPHOCYTIC LEUKAEMIA
     Dosage: BERLIN-FRANKFURT-MUNSTER PROTOCOL
     Route: 065
     Dates: end: 20040701
  3. CYCLOPHOSPHAMIDE [Suspect]
     Indication: ACUTE LYMPHOCYTIC LEUKAEMIA
     Dosage: BERLIN-FRANKFURT-MUNSTER PROTOCOL
     Route: 065
  4. VINCRISTINE [Suspect]
     Indication: ACUTE LYMPHOCYTIC LEUKAEMIA
     Dosage: BERLIN-FRANKFURT-MUNSTER PROTOCOL
     Route: 065
  5. ASPARAGINASE [Suspect]
     Indication: ACUTE LYMPHOCYTIC LEUKAEMIA
     Dosage: BERLIN-FRANKFURT-MUNSTER PROTOCOL
     Route: 065
  6. DOXORUBICIN HYDROCHLORIDE [Suspect]
     Indication: ACUTE LYMPHOCYTIC LEUKAEMIA
     Dosage: BERLIN-FRANKFURT-MUNSTER PROTOCOL
     Route: 065
  7. PREDNISONE [Suspect]
     Indication: ACUTE LYMPHOCYTIC LEUKAEMIA
     Dosage: BERLIN-FRANKFURT-MUNSTER PROTOCOL
     Route: 065
  8. CYTARABINE [Suspect]
     Indication: ACUTE LYMPHOCYTIC LEUKAEMIA
     Dosage: BERLIN-FRANKFURT-MUNSTER PROTOCOL
     Route: 065
  9. METHOTREXATE [Suspect]
     Indication: ACUTE LYMPHOCYTIC LEUKAEMIA
     Dosage: BERLIN-FRANKFURT-MUNSTER PROTOCOL
     Route: 037
     Dates: end: 20040701

REACTIONS (5)
  - FACIAL NERVE DISORDER [None]
  - PARALYSIS [None]
  - MUCOEPIDERMOID CARCINOMA [None]
  - METASTASIS [None]
  - SALIVARY GLAND CANCER [None]
